FAERS Safety Report 9714896 (Version 1)
Quarter: 2013Q4

REPORT INFORMATION
  Report Type: Spontaneous
  Country: FR (occurrence: None)
  Receive Date: 20131125
  Receipt Date: 20131125
  Transmission Date: 20140711
  Serious: Yes (Other)
  Sender: FDA-Public Use
  Company Number: 2013324676

PATIENT
  Age: 53 Year
  Sex: Male
  Weight: 76 kg

DRUGS (2)
  1. FRAGMINE [Suspect]
     Route: 058
     Dates: start: 20130721
  2. ASPEGIC [Suspect]
     Route: 048
     Dates: start: 20130721

REACTIONS (4)
  - Duodenal ulcer [None]
  - Melaena [None]
  - Haematemesis [None]
  - Duodenitis [None]
